FAERS Safety Report 5368711-1 (Version None)
Quarter: 2007Q2

REPORT INFORMATION
  Report Type: 
  Country: None (occurrence: None)
  Receive Date: 20070625
  Receipt Date: 20070417
  Transmission Date: 20071010
  Serious: No
  Sender: FDA-Public Use
  Company Number: US-BRISTOL-MYERS SQUIBB COMPANY-13750146

PATIENT
  Sex: Female
  Weight: 56 kg

DRUGS (8)
  1. ORENCIA [Suspect]
     Dates: start: 20060823
  2. METHOTREXATE [Concomitant]
  3. HUMALOG [Concomitant]
  4. BUSPAR [Concomitant]
  5. WELLBUTRIN [Concomitant]
  6. CLONAZEPAM [Concomitant]
  7. ADVIL [Concomitant]
  8. SULINDAC [Concomitant]

REACTIONS (5)
  - BLOOD GLUCOSE FLUCTUATION [None]
  - DIARRHOEA [None]
  - NAUSEA [None]
  - VOMITING [None]
  - WEIGHT DECREASED [None]
